FAERS Safety Report 9705811 (Version 2)
Quarter: 2013Q4

REPORT INFORMATION
  Report Type: Spontaneous
  Country: US (occurrence: US)
  Receive Date: 20131122
  Receipt Date: 20131122
  Transmission Date: 20140711
  Serious: No
  Sender: FDA-Public Use
  Company Number: US-GILEAD-2008-0018080

PATIENT
  Sex: Female

DRUGS (17)
  1. LETAIRIS [Suspect]
     Indication: PULMONARY ARTERIAL HYPERTENSION
     Route: 048
     Dates: start: 20070801, end: 20080901
  2. ZYRTEC [Concomitant]
  3. ASPIRIN [Concomitant]
  4. FLOVENT [Concomitant]
  5. PREMPRO [Concomitant]
  6. CARTIA XT [Concomitant]
  7. ANTARA [Concomitant]
  8. LIPITOR [Concomitant]
  9. DIOVAN [Concomitant]
  10. VITAMIN B12 [Concomitant]
  11. FORADIL [Concomitant]
  12. SYNTHROID [Concomitant]
  13. TRAMADOL [Concomitant]
  14. IMDUR [Concomitant]
  15. LASIX [Concomitant]
  16. METFORMIN [Concomitant]
  17. ACTOS [Concomitant]

REACTIONS (1)
  - Oedema peripheral [None]
